FAERS Safety Report 6109417-0 (Version None)
Quarter: 2009Q1

REPORT INFORMATION
  Report Type: 
  Country: None (occurrence: None)
  Receive Date: 20090310
  Receipt Date: 20090309
  Transmission Date: 20090719
  Serious: Yes (Life-Threatening, Hospitalization)
  Sender: FDA-Public Use
  Company Number: B0560771A

PATIENT
  Age: 7 Year
  Sex: Female

DRUGS (2)
  1. LAMICTAL [Suspect]
     Indication: EPILEPSY
     Route: 048
     Dates: start: 20090124, end: 20090206
  2. VALPROATE SODIUM [Suspect]
     Indication: EPILEPSY
     Route: 048
     Dates: end: 20090206

REACTIONS (7)
  - LUNG DISORDER [None]
  - ORAL DISORDER [None]
  - PYREXIA [None]
  - RASH MACULO-PAPULAR [None]
  - RESPIRATORY DISTRESS [None]
  - SKIN DISORDER [None]
  - STEVENS-JOHNSON SYNDROME [None]
